FAERS Safety Report 8556907-7 (Version None)
Quarter: 2012Q3

REPORT INFORMATION
  Report Type: 
  Country: None (occurrence: None)
  Receive Date: 20120801
  Receipt Date: 20120724
  Transmission Date: 20120928
  Serious: Yes (Life-Threatening, Other)
  Sender: FDA-Public Use
  Company Number: PL-ROCHE-1074096

PATIENT
  Age: 40 Year
  Sex: Female
  Weight: 45.2 kg

DRUGS (2)
  1. VEMURAFENIB [Suspect]
     Dosage: LAST DOSE PRIOR TO THE EVENT: 'SECOND PRIMARY MELANOMA' ON 28/MAY/2012. LAST DOSE PRIOR TO ANEMIA ON
     Route: 048
     Dates: start: 20120508
  2. VEMURAFENIB [Suspect]
     Indication: METASTATIC MALIGNANT MELANOMA
     Dosage: LAST DOSE PRIOR TO THE EVENT: 'SECOND PRIMARY MELANOMA' ON 28/MAY/2012. LAST DOSE PRIOR TO ANEMIA ON
     Route: 048
     Dates: start: 20120207, end: 20120429

REACTIONS (2)
  - ANAEMIA [None]
  - MALIGNANT MELANOMA [None]
